FAERS Safety Report 6965090-0 (Version None)
Quarter: 2010Q3

REPORT INFORMATION
  Report Type: 
  Country: None (occurrence: None)
  Receive Date: 20100903
  Receipt Date: 20100830
  Transmission Date: 20110219
  Serious: Yes (Life-Threatening, Hospitalization, Other)
  Sender: FDA-Public Use
  Company Number: US-BAYER-201025923NA

PATIENT
  Age: 54 Year
  Sex: Female
  Weight: 65 kg

DRUGS (24)
  1. SORAFENIB [Suspect]
     Indication: PANCREATIC CARCINOMA
     Dosage: TOTAL DAILY DOSE: 400 MG  UNIT DOSE: 200 MG
     Route: 048
     Dates: start: 20100726, end: 20100821
  2. SORAFENIB [Suspect]
     Dosage: TOTAL DAILY DOSE: 400 MG  UNIT DOSE: 200 MG
     Route: 048
     Dates: start: 20100717, end: 20100726
  3. SORAFENIB [Suspect]
     Dosage: TOTAL DAILY DOSE: 800 MG  UNIT DOSE: 200 MG
     Route: 048
     Dates: start: 20100601, end: 20100607
  4. SORAFENIB [Suspect]
     Dosage: TOTAL DAILY DOSE: 400 MG  UNIT DOSE: 200 MG
     Route: 048
     Dates: start: 20100609, end: 20100614
  5. SORAFENIB [Suspect]
     Dosage: TOTAL DAILY DOSE: 800 MG  UNIT DOSE: 200 MG
     Route: 048
     Dates: start: 20100506, end: 20100531
  6. RDEA119 [Suspect]
     Indication: PANCREATIC CARCINOMA
     Dosage: TOTAL DAILY DOSE: 100 MG
     Route: 048
     Dates: start: 20100601, end: 20100607
  7. RDEA119 [Suspect]
     Dosage: TOTAL DAILY DOSE: 60 MG
     Route: 048
     Dates: start: 20100717, end: 20100726
  8. RDEA119 [Suspect]
     Dosage: TOTAL DAILY DOSE: 60 MG
     Route: 048
     Dates: start: 20100726, end: 20100821
  9. RDEA119 [Suspect]
     Dosage: TOTAL DAILY DOSE: 60 MG
     Route: 048
     Dates: start: 20100609, end: 20100614
  10. RDEA119 [Suspect]
     Dosage: TOTAL DAILY DOSE: 100 MG
     Route: 048
     Dates: start: 20100503, end: 20100531
  11. LEXAPRO [Concomitant]
     Indication: DEPRESSION
     Route: 048
     Dates: start: 20020101
  12. MICARDIS [Concomitant]
     Indication: HYPERTENSION
     Route: 048
     Dates: start: 20090401
  13. MICARDIS [Concomitant]
     Dosage: 80/12.5MG
     Route: 048
     Dates: start: 20100707
  14. PROTONIX [Concomitant]
     Indication: GASTROOESOPHAGEAL REFLUX DISEASE
     Route: 048
     Dates: start: 20100429, end: 20100615
  15. REGLAN [Concomitant]
     Indication: ABDOMINAL PAIN UPPER
     Route: 048
     Dates: start: 20100315, end: 20100615
  16. IMODIUM A-D [Concomitant]
     Indication: DIARRHOEA
     Route: 048
     Dates: start: 20100509
  17. HYDROCODONE BITARTRATE AND ACETAMINOPHEN [Concomitant]
     Indication: ABDOMINAL PAIN
     Dosage: AS USED: 5-500 MG
     Route: 048
     Dates: start: 20100419
  18. ZOFRAN [Concomitant]
     Indication: NAUSEA
     Route: 060
     Dates: start: 20100415, end: 20100615
  19. ARANESP [Concomitant]
     Indication: ANAEMIA
     Dosage: TOTAL DAILY DOSE: 200 ?G
     Route: 058
     Dates: start: 20070808, end: 20100615
  20. COMPAZINE [Concomitant]
     Indication: NAUSEA
     Route: 048
     Dates: start: 20070801
  21. PANCRELIPASE [Concomitant]
     Indication: DIARRHOEA
     Dosage: 4.5-25 TO 20K 3 TABS
     Route: 048
     Dates: start: 20100707
  22. GABAPENTIN [Concomitant]
     Indication: ABDOMINAL PAIN
     Dosage: TOTAL DAILY DOSE: 300 MG
     Route: 048
     Dates: start: 20100707
  23. NORVASC [Concomitant]
     Indication: HYPERTENSION
     Dosage: TOTAL DAILY DOSE: 5 MG
     Route: 048
     Dates: start: 20100707
  24. NEBIVOLOL [Concomitant]
     Indication: HYPERTENSION
     Dosage: TOTAL DAILY DOSE: 5 MG
     Route: 048
     Dates: start: 20100707

REACTIONS (4)
  - FALL [None]
  - PYOTHORAX [None]
  - SUBARACHNOID HAEMORRHAGE [None]
  - THROMBOCYTOPENIA [None]
